FAERS Safety Report 12737599 (Version 1)
Quarter: 2016Q3

REPORT INFORMATION
  Report Type: Spontaneous
  Country: BR (occurrence: BR)
  Receive Date: 20160913
  Receipt Date: 20160913
  Transmission Date: 20161109
  Serious: Yes (Hospitalization)
  Sender: FDA-Public Use
  Company Number: BR-PFIZER INC-2016420486

PATIENT

DRUGS (1)
  1. ADRIBLASTINA RD [Suspect]
     Active Substance: DOXORUBICIN HYDROCHLORIDE
     Indication: THERAPEUTIC EMBOLISATION

REACTIONS (1)
  - Respiratory distress [Unknown]
